FAERS Safety Report 15317015 (Version 1)
Quarter: 2018Q3

REPORT INFORMATION
  Report Type: Spontaneous
  Country: US (occurrence: US)
  Receive Date: 20180824
  Receipt Date: 20180824
  Transmission Date: 20181010
  Serious: Yes (Death, Life-Threatening, Hospitalization)
  Sender: FDA-Public Use
  Company Number: US-BAYER-2018-156098

PATIENT
  Age: 50 Year
  Sex: Male

DRUGS (1)
  1. ACETYLSALICYLIC ACID (} 100 MG) [Suspect]
     Active Substance: ASPIRIN

REACTIONS (3)
  - Haematemesis [None]
  - Multiple organ dysfunction syndrome [Fatal]
  - Necrotising oesophagitis [None]
